FAERS Safety Report 7798578-3 (Version None)
Quarter: 2011Q4

REPORT INFORMATION
  Report Type: 
  Country: None (occurrence: None)
  Receive Date: 20111005
  Receipt Date: 20110927
  Transmission Date: 20120403
  Serious: Yes (Congenital Anomaly, Other)
  Sender: FDA-Public Use
  Company Number: AU-MERCK-1109USA02963B1

PATIENT
  Age: 1 Day

DRUGS (2)
  1. ISENTRESS [Suspect]
     Route: 064
  2. COMBIVIR [Suspect]
     Indication: PROPHYLAXIS
     Route: 064

REACTIONS (2)
  - MATERNAL EXPOSURE DURING PREGNANCY [None]
  - PLAGIOCEPHALY [None]
